FAERS Safety Report 5723727-8 (Version None)
Quarter: 2008Q2

REPORT INFORMATION
  Report Type: 
  Country: None (occurrence: None)
  Receive Date: 20080430
  Receipt Date: 20080422
  Transmission Date: 20081010
  Serious: Yes (Hospitalization)
  Sender: FDA-Public Use
  Company Number: FR-ASTRAZENECA-2008CG00616

PATIENT
  Age: 23163 Day
  Sex: Male
  Weight: 79 kg

DRUGS (4)
  1. CASODEX [Suspect]
     Route: 048
     Dates: start: 20080305, end: 20080305
  2. LEUPROLIDE ACETATE [Suspect]
     Route: 058
     Dates: start: 20080305, end: 20080305
  3. SUTENT [Suspect]
     Route: 048
     Dates: start: 20080222, end: 20080312
  4. AMOXICILLIN [Concomitant]
     Indication: PHARYNGITIS
     Dates: start: 20080301

REACTIONS (2)
  - CYTOLYTIC HEPATITIS [None]
  - PANCREATIC ENZYMES INCREASED [None]
